FAERS Safety Report 9524698 (Version 1)
Quarter: 2013Q3

REPORT INFORMATION
  Report Type: Spontaneous
  Country: US (occurrence: None)
  Receive Date: 20130912
  Receipt Date: 20130912
  Transmission Date: 20140515
  Serious: Yes (Other)
  Sender: FDA-Public Use
  Company Number: None

PATIENT
  Age: 79 Year
  Sex: Female
  Weight: 72.58 kg

DRUGS (4)
  1. CARVEDIL 25 [Suspect]
     Indication: HYPERTENSION
     Route: 048
     Dates: start: 20110101, end: 201309
  2. LISINOPRIL [Concomitant]
  3. OMEPRAZOLE [Concomitant]
  4. LANTUS [Concomitant]

REACTIONS (5)
  - Asthenia [None]
  - Fatigue [None]
  - Dizziness [None]
  - Decreased activity [None]
  - Drug effect decreased [None]
